FAERS Safety Report 10697176 (Version 3)
Quarter: 2015Q1

REPORT INFORMATION
  Report Type: Spontaneous
  Country: US (occurrence: US)
  Receive Date: 20150108
  Receipt Date: 20150116
  Transmission Date: 20150721
  Serious: Yes (Life-Threatening, Other)
  Sender: FDA-Public Use
  Company Number: PHEH2014US025797

PATIENT
  Age: 45 Year
  Sex: Male

DRUGS (5)
  1. MODAFINIL. [Concomitant]
     Active Substance: MODAFINIL
     Indication: FATIGUE
     Dosage: 200 MG, BID
     Route: 048
  2. SERTRALINE [Concomitant]
     Active Substance: SERTRALINE HYDROCHLORIDE
     Indication: AFFECTIVE DISORDER
     Dosage: 50 MG, BID
     Route: 048
  3. BACLOFEN. [Concomitant]
     Active Substance: BACLOFEN
     Indication: MUSCULOSKELETAL STIFFNESS
     Dosage: 20 MG, TID PRN
     Route: 048
  4. DESIPRAMINE [Concomitant]
     Active Substance: DESIPRAMINE
     Indication: AFFECTIVE DISORDER
     Dosage: 100 MG, HS
     Route: 048
  5. GILENYA [Suspect]
     Active Substance: FINGOLIMOD HYDROCHLORIDE
     Indication: MULTIPLE SCLEROSIS
     Dosage: 0.5 MG, QD
     Route: 048
     Dates: start: 20141216, end: 20141223

REACTIONS (2)
  - Fatigue [Recovered/Resolved]
  - Somnambulism [Unknown]

NARRATIVE: CASE EVENT DATE: 20141216
